FAERS Safety Report 5001456-6 (Version None)
Quarter: 2006Q2

REPORT INFORMATION
  Report Type: 
  Country: None (occurrence: None)
  Receive Date: 20060512
  Receipt Date: 20060508
  Transmission Date: 20061013
  Serious: Yes (Disabling)
  Sender: FDA-Public Use
  Company Number: US-MERCK-0605USA01779

PATIENT
  Age: 79 Year
  Sex: Male

DRUGS (1)
  1. VIOXX [Suspect]
     Indication: ARTHRALGIA
     Route: 048
     Dates: start: 19990801, end: 20020411

REACTIONS (4)
  - ANXIETY [None]
  - MYOCARDIAL INFARCTION [None]
  - PAIN [None]
  - POLYTRAUMATISM [None]
